FAERS Safety Report 24856883 (Version 1)
Quarter: 2025Q1

REPORT INFORMATION
  Report Type: Spontaneous
  Country: US (occurrence: None)
  Receive Date: 20250117
  Receipt Date: 20250117
  Transmission Date: 20250409
  Serious: Yes (Hospitalization)
  Sender: FDA-CTU
  Company Number: None

PATIENT
  Age: 71 Year
  Sex: Female

DRUGS (4)
  1. KESIMPTA [Suspect]
     Active Substance: OFATUMUMAB
     Indication: Multiple sclerosis
     Dosage: 20MG ONCE MONTHLY
  2. ZONISAMIDE [Suspect]
     Active Substance: ZONISAMIDE
  3. FENTANYL [Suspect]
     Active Substance: FENTANYL
  4. CANNABIS SATIVA SUBSP. INDICA TOP [Suspect]
     Active Substance: CANNABIS SATIVA SUBSP. INDICA TOP

REACTIONS (6)
  - Dizziness [None]
  - Memory impairment [None]
  - Dyskinesia [None]
  - Toxicity to various agents [None]
  - Drug screen positive [None]
  - Medical cannabis therapy [None]
